FAERS Safety Report 5978004-7 (Version None)
Quarter: 2008Q4

REPORT INFORMATION
  Report Type: 
  Country: None (occurrence: None)
  Receive Date: 20081126
  Receipt Date: 20081115
  Transmission Date: 20090506
  Serious: Yes (Hospitalization)
  Sender: FDA-Public Use
  Company Number: KV200800366

PATIENT
  Sex: Female

DRUGS (4)
  1. ISOSORBIDE MONONITRATE [Suspect]
     Indication: ANGINA PECTORIS
     Dosage: 60 MG, QD
  2. METOPROLOL TARTRATE [Concomitant]
  3. VYTORIN [Concomitant]
  4. SPIRONOLACTONE [Concomitant]

REACTIONS (4)
  - HYPOTENSION [None]
  - KIDNEY INFECTION [None]
  - PRODUCT QUALITY ISSUE [None]
  - URINARY TRACT INFECTION [None]
